FAERS Safety Report 7723758-2 (Version None)
Quarter: 2011Q3

REPORT INFORMATION
  Report Type: 
  Country: None (occurrence: None)
  Receive Date: 20110901
  Receipt Date: 20110826
  Transmission Date: 20111222
  Serious: Yes (Hospitalization, Disabling)
  Sender: FDA-Public Use
  Company Number: DE-ELI_LILLY_AND_COMPANY-DE201108008291

PATIENT
  Age: 58 Year
  Sex: Male
  Weight: 77 kg

DRUGS (3)
  1. TARCEVA [Concomitant]
     Indication: PANCREATIC CARCINOMA
     Dosage: 100 MG, QD
     Route: 048
     Dates: start: 20110111, end: 20110219
  2. GEMZAR [Suspect]
     Indication: PANCREATIC CARCINOMA
     Dosage: 1950 MG, UNK
     Route: 042
     Dates: start: 20110111, end: 20110215
  3. REMICADE [Concomitant]
     Indication: ANKYLOSING SPONDYLITIS
     Dosage: 300 MG, UNKNOWN
     Route: 042
     Dates: start: 20110106

REACTIONS (2)
  - RENAL FAILURE [None]
  - SEPSIS [None]
